FAERS Safety Report 6512528-9 (Version None)
Quarter: 2009Q4

REPORT INFORMATION
  Report Type: 
  Country: None (occurrence: None)
  Receive Date: 20091222
  Receipt Date: 20091211
  Transmission Date: 20100525
  Serious: Yes (Other)
  Sender: FDA-Public Use
  Company Number: US-GENENTECH-295865

PATIENT

DRUGS (1)
  1. CATHFLO ACTIVASE [Suspect]
     Indication: DRUG USE FOR UNKNOWN INDICATION
     Dosage: 2 MG, SINGLE
     Route: 050

REACTIONS (1)
  - ANAPHYLACTIC REACTION [None]
